FAERS Safety Report 12239449 (Version 2)
Quarter: 2020Q3

REPORT INFORMATION
  Report Type: Spontaneous
  Country: US (occurrence: US)
  Receive Date: 20160405
  Receipt Date: 20200826
  Transmission Date: 20201102
  Serious: No
  Sender: FDA-Public Use
  Company Number: US-009507513-1604USA002153

PATIENT
  Age: 26 Year
  Sex: Female

DRUGS (2)
  1. NEXPLANON [Suspect]
     Active Substance: ETONOGESTREL
     Indication: CONTRACEPTION
     Dosage: 68 MG, Q 3 YEARS
     Route: 059
     Dates: start: 20160317
  2. NEXPLANON [Suspect]
     Active Substance: ETONOGESTREL
     Dosage: 68 MILLIGRAM, ONCE
     Route: 059
     Dates: start: 201812, end: 20200207

REACTIONS (3)
  - Device breakage [Unknown]
  - Device kink [Unknown]
  - Mood swings [Unknown]

NARRATIVE: CASE EVENT DATE: 20160404
